FAERS Safety Report 17602817 (Version 1)
Quarter: 2020Q1

REPORT INFORMATION
  Report Type: Spontaneous
  Country: TR (occurrence: TR)
  Receive Date: 20200331
  Receipt Date: 20200331
  Transmission Date: 20200409
  Serious: Yes (Other)
  Sender: FDA-Public Use
  Company Number: TR-ORION CORPORATION ORION PHARMA-ENTC2020-0064

PATIENT
  Age: 63 Year
  Sex: Male

DRUGS (5)
  1. STALEVO [Suspect]
     Active Substance: CARBIDOPA\ENTACAPONE\LEVODOPA
     Indication: PARKINSON^S DISEASE
     Dosage: (LEVODOPA-CARBIDOPA-ENTACAPONE) 100-25-200 MG
     Route: 065
  2. STALEVO [Suspect]
     Active Substance: CARBIDOPA\ENTACAPONE\LEVODOPA
     Route: 065
  3. P.K MERZ [Concomitant]
     Route: 065
  4. STALEVO [Suspect]
     Active Substance: CARBIDOPA\ENTACAPONE\LEVODOPA
     Dosage: 150 MG
     Route: 065
  5. AZILET [Concomitant]
     Route: 065

REACTIONS (5)
  - Blood count abnormal [Unknown]
  - Prostate cancer metastatic [Unknown]
  - Drug ineffective [Unknown]
  - Fall [Unknown]
  - Gait disturbance [Unknown]
